FAERS Safety Report 14553497 (Version 1)
Quarter: 2018Q1

REPORT INFORMATION
  Report Type: Spontaneous
  Country: DE (occurrence: DE)
  Receive Date: 20180220
  Receipt Date: 20180220
  Transmission Date: 20180509
  Serious: Yes (Hospitalization)
  Sender: FDA-Public Use
  Company Number: DE-PFIZER INC-2018067843

PATIENT
  Sex: Female

DRUGS (8)
  1. MUCOFALK [Suspect]
     Active Substance: HERBALS\PLANTAGO OVATA LEAF
     Indication: ABNORMAL FAECES
     Dosage: 15 G, QD
     Route: 048
     Dates: start: 2017, end: 20171208
  2. L-THYROXIN [Suspect]
     Active Substance: LEVOTHYROXINE SODIUM
     Dosage: 125 MG, UNK
     Route: 065
  3. ACETYLSALICYLIC ACID [Suspect]
     Active Substance: ASPIRIN
     Dosage: 100 MG, QD
     Route: 065
  4. OSVAREN [Suspect]
     Active Substance: CALCIUM ACETATE\MAGNESIUM CARBONATE
     Dosage: UNK, TID
     Route: 065
  5. MUCOFALK [Suspect]
     Active Substance: HERBALS\PLANTAGO OVATA LEAF
     Dosage: 20 G, QD
     Route: 048
     Dates: start: 20171209, end: 20171209
  6. CORTISONE [Suspect]
     Active Substance: CORTISONE\HYDROCORTISONE
     Dosage: 5 G, QD
     Route: 065
  7. NEPHROTRANS [Suspect]
     Active Substance: SODIUM BICARBONATE
     Dosage: 6 G, QID
     Route: 065
  8. PANTOPRAZOLE [Suspect]
     Active Substance: PANTOPRAZOLE
     Dosage: 20 MG, BID
     Route: 065

REACTIONS (3)
  - Myalgia [Recovered/Resolved]
  - Hyperkalaemia [Recovered/Resolved]
  - Asthenia [Recovered/Resolved]

NARRATIVE: CASE EVENT DATE: 20171210
